FAERS Safety Report 6908309-4 (Version None)
Quarter: 2010Q3

REPORT INFORMATION
  Report Type: 
  Country: None (occurrence: None)
  Receive Date: 20100805
  Receipt Date: 20100721
  Transmission Date: 20110219
  Serious: Yes (Other)
  Sender: FDA-Public Use
  Company Number: MX-ROCHE-718579

PATIENT
  Sex: Female
  Weight: 59 kg

DRUGS (5)
  1. CAPECITABINE [Suspect]
     Indication: BREAST CANCER METASTATIC
     Dosage: FREQUENCY; 5QD (3-0-2)
     Route: 048
     Dates: start: 20100401, end: 20100401
  2. CAPECITABINE [Suspect]
     Dosage: FREQUENCY: 2 BID
     Route: 048
     Dates: start: 20100618
  3. BEVACIZUMAB [Concomitant]
     Indication: BREAST CANCER METASTATIC
     Route: 042
     Dates: start: 20100619
  4. PALONOSETRON [Concomitant]
     Route: 042
     Dates: start: 20100619
  5. DEXAMETHASONE [Concomitant]
     Route: 042
     Dates: start: 20100619

REACTIONS (4)
  - BLINDNESS [None]
  - HEADACHE [None]
  - PALMAR-PLANTAR ERYTHRODYSAESTHESIA SYNDROME [None]
  - PERICARDIAL EFFUSION [None]
